FAERS Safety Report 5853300-2 (Version None)
Quarter: 2008Q3

REPORT INFORMATION
  Report Type: 
  Country: None (occurrence: None)
  Receive Date: 20080821
  Receipt Date: 20080818
  Transmission Date: 20090109
  Serious: Yes (Other)
  Sender: FDA-Public Use
  Company Number: US-PFIZER INC-2003113426

PATIENT
  Sex: Female
  Weight: 88 kg

DRUGS (11)
  1. NARDIL [Suspect]
     Indication: ANXIETY
     Route: 048
  2. NARDIL [Suspect]
     Indication: DEPRESSION
  3. ADDERALL 10 [Concomitant]
     Route: 048
  4. PROVIGIL [Concomitant]
     Route: 048
  5. ZONEGRAN [Concomitant]
     Route: 048
  6. AMBIEN [Concomitant]
     Route: 048
  7. LORAZEPAM [Concomitant]
     Route: 065
  8. YOHIMBINE HYDROCHLORIDE [Concomitant]
     Indication: HYPOTENSION
  9. NIFEDIPINE [Concomitant]
  10. TRILEPTAL [Concomitant]
  11. CLONAZEPAM [Concomitant]

REACTIONS (17)
  - BREAST CANCER [None]
  - C-REACTIVE PROTEIN INCREASED [None]
  - DRUG INEFFECTIVE [None]
  - DRY MOUTH [None]
  - DYSGEUSIA [None]
  - FATIGUE [None]
  - FLUID INTAKE REDUCED [None]
  - HEAD DISCOMFORT [None]
  - HEADACHE [None]
  - HYPERTENSIVE CRISIS [None]
  - HYPOTENSION [None]
  - NAUSEA [None]
  - PALPITATIONS [None]
  - SOMNOLENCE [None]
  - STOMACH DISCOMFORT [None]
  - WEIGHT DECREASED [None]
  - WEIGHT INCREASED [None]
